FAERS Safety Report 12681891 (Version 5)
Quarter: 2016Q4

REPORT INFORMATION
  Report Type: Report from Study
  Country: US (occurrence: US)
  Receive Date: 20160824
  Receipt Date: 20161110
  Transmission Date: 20170207
  Serious: Yes (Hospitalization)
  Sender: FDA-Public Use
  Company Number: US-ACTELION-A-NJ2016-136873

PATIENT
  Age: 40 Year
  Sex: Female

DRUGS (6)
  1. WARFARIN [Concomitant]
     Active Substance: WARFARIN
  2. OPSUMIT [Suspect]
     Active Substance: MACITENTAN
     Indication: PULMONARY ARTERIAL HYPERTENSION
     Dosage: 10 MG, QD
     Route: 048
     Dates: start: 20151106
  3. UPTRAVI [Suspect]
     Active Substance: SELEXIPAG
     Dosage: 800 MCG, BID
     Route: 048
  4. UPTRAVI [Suspect]
     Active Substance: SELEXIPAG
     Indication: PULMONARY ARTERIAL HYPERTENSION
     Dosage: 200 MCG, BID
     Route: 048
     Dates: start: 20160501
  5. REMODULIN [Concomitant]
     Active Substance: TREPROSTINIL
  6. REVATIO [Concomitant]
     Active Substance: SILDENAFIL CITRATE

REACTIONS (10)
  - Asthenia [Unknown]
  - Dizziness [Recovered/Resolved]
  - Gastritis viral [Unknown]
  - Pain in jaw [Recovered/Resolved]
  - Diarrhoea [Recovered/Resolved]
  - Nausea [Recovered/Resolved]
  - Pulmonary arterial hypertension [Unknown]
  - Headache [Recovered/Resolved]
  - Vomiting [Recovered/Resolved]
  - Myalgia [Unknown]

NARRATIVE: CASE EVENT DATE: 201605
